FAERS Safety Report 6644403-3 (Version None)
Quarter: 2010Q1

REPORT INFORMATION
  Report Type: 
  Country: None (occurrence: None)
  Receive Date: 20100317
  Receipt Date: 20100303
  Transmission Date: 20100710
  Serious: Yes (Death)
  Sender: FDA-Public Use
  Company Number: 2010AP000430

PATIENT
  Age: 3 Year
  Sex: Male

DRUGS (7)
  1. MYCOPHENOLATE MOFETIL [Suspect]
     Indication: PROPHYLAXIS AGAINST GRAFT VERSUS HOST DISEASE
  2. MYCOPHENOLATE MOFETIL [Suspect]
     Indication: STEM CELL TRANSPLANT
  3. CYCLOSPORINE [Suspect]
     Indication: PROPHYLAXIS AGAINST GRAFT VERSUS HOST DISEASE
  4. CYCLOSPORINE [Suspect]
     Indication: STEM CELL TRANSPLANT
  5. CYTOMEGALOVIRUS VIREMIA [Concomitant]
  6. DEVELOPMENTAL DELAY [Concomitant]
  7. HYPOGAMMAGLOBULINAEMIA [Concomitant]

REACTIONS (3)
  - ACUTE GRAFT VERSUS HOST DISEASE IN LIVER [None]
  - ACUTE GRAFT VERSUS HOST DISEASE IN SKIN [None]
  - CYTOMEGALOVIRUS INFECTION [None]
